FAERS Safety Report 14175189 (Version 1)
Quarter: 2017Q4

REPORT INFORMATION
  Report Type: Spontaneous
  Country: DK (occurrence: DK)
  Receive Date: 20171109
  Receipt Date: 20171109
  Transmission Date: 20180321
  Serious: Yes (Hospitalization)
  Sender: FDA-Public Use
  Company Number: DK-MYLANLABS-2017M1068984

PATIENT
  Age: 22 Year
  Sex: Female

DRUGS (1)
  1. NAPROXEN MYLAN [Suspect]
     Active Substance: NAPROXEN
     Indication: PAIN
     Dosage: 500 MG, BID
     Route: 048
     Dates: start: 20130910

REACTIONS (5)
  - Musculoskeletal pain [Unknown]
  - Walking aid user [Unknown]
  - Bone marrow oedema [Unknown]
  - Sacroiliitis [Unknown]
  - Condition aggravated [Unknown]

NARRATIVE: CASE EVENT DATE: 201408
